FAERS Safety Report 4483875-X (Version None)
Quarter: 2004Q4

REPORT INFORMATION
  Report Type: 
  Country: None (occurrence: None)
  Receive Date: 20041020
  Receipt Date: 20041005
  Transmission Date: 20050328
  Serious: Yes (Other)
  Sender: FDA-Public Use
  Company Number: USA040978801

PATIENT
  Age: 52 Year
  Sex: Male

DRUGS (5)
  1. CIALIS [Suspect]
     Dosage: 20 MG
     Dates: start: 20040101
  2. LIPITOR [Concomitant]
  3. SAW PALMETTO [Concomitant]
  4. GARLIC [Concomitant]
  5. MULTI-VITAMIN [Concomitant]

REACTIONS (4)
  - ANAL DISCOMFORT [None]
  - DRUG EFFECT DECREASED [None]
  - HERPES VIRUS INFECTION [None]
  - STEVENS-JOHNSON SYNDROME [None]
